FAERS Safety Report 9013258 (Version 1)
Quarter: 2013Q1

REPORT INFORMATION
  Report Type: Spontaneous
  Country: US (occurrence: None)
  Receive Date: 20130107
  Receipt Date: 20130107
  Transmission Date: 20140127
  Serious: Yes (Other)
  Sender: FDA-Public Use
  Company Number: None

PATIENT
  Age: 29 Year
  Sex: Male
  Weight: 95 kg

DRUGS (2)
  1. PROPOFOL [Suspect]
     Indication: MECHANICAL VENTILATION
     Dates: start: 20121221, end: 20121226
  2. PROPOFOL [Suspect]
     Indication: SEDATIVE THERAPY
     Dates: start: 20121221, end: 20121226

REACTIONS (13)
  - Multi-organ failure [None]
  - Renal failure acute [None]
  - Haemodialysis [None]
  - Hyperbilirubinaemia [None]
  - Lipase increased [None]
  - Amylase increased [None]
  - Hypertriglyceridaemia [None]
  - Electrocardiogram ST segment depression [None]
  - Carotid artery thrombosis [None]
  - Troponin increased [None]
  - Abscess [None]
  - Pneumonia staphylococcal [None]
  - Enterobacter pneumonia [None]
